FAERS Safety Report 4970077-3 (Version None)
Quarter: 2006Q2

REPORT INFORMATION
  Report Type: 
  Country: None (occurrence: None)
  Receive Date: 20060406
  Receipt Date: 20060317
  Transmission Date: 20061013
  Serious: Yes (Hospitalization, Other)
  Sender: FDA-Public Use
  Company Number: US200601003463

PATIENT
  Sex: Female
  Weight: 61.2 kg

DRUGS (12)
  1. FORTEO [Suspect]
     Indication: OSTEOPOROSIS
     Dates: start: 20051001, end: 20051213
  2. FORTEO [Suspect]
     Indication: OSTEOPOROSIS
     Dates: start: 20050117
  3. FUROSEMIDE [Concomitant]
  4. SINGULAIR ^MERCK^ (MONTELUKAST SODIUM) [Concomitant]
  5. MAGNESIUM OXIDE (MAGNESIUM OXIDE) [Concomitant]
  6. CALCIUM CARBONATE (CALCIUM CARBONATE) [Concomitant]
  7. VITAMIN D [Concomitant]
  8. CYANOCOBALAMIN [Concomitant]
  9. ZOLOFT [Concomitant]
  10. ATENOLOL [Concomitant]
  11. NEXIUM [Concomitant]
  12. ZAROXOLYN [Concomitant]

REACTIONS (11)
  - ABDOMINAL PAIN UPPER [None]
  - BLOOD POTASSIUM DECREASED [None]
  - GALLBLADDER DISORDER [None]
  - HEPATIC CIRRHOSIS [None]
  - INJECTION SITE BRUISING [None]
  - INJECTION SITE HAEMORRHAGE [None]
  - LUNG INFECTION [None]
  - OEDEMA [None]
  - OPERATIVE HAEMORRHAGE [None]
  - PHARMACEUTICAL PRODUCT COMPLAINT [None]
  - THYROID DISORDER [None]
